FAERS Safety Report 9968632 (Version 1)
Quarter: 2014Q1

REPORT INFORMATION
  Report Type: Report from Study
  Country: US (occurrence: US)
  Receive Date: 20140306
  Receipt Date: 20140306
  Transmission Date: 20141002
  Serious: No
  Sender: FDA-Public Use
  Company Number: US-ABBVIE-13P-163-1146936-00

PATIENT
  Age: 66 Year
  Sex: Female

DRUGS (6)
  1. HUMIRA [Suspect]
     Indication: PSORIASIS
  2. CLOBETASOL [Concomitant]
     Indication: PSORIASIS
  3. CLODERM [Concomitant]
     Indication: PSORIASIS
  4. DESONIDE [Concomitant]
     Indication: PSORIASIS
  5. METRONIDAZOLE [Concomitant]
     Indication: PSORIASIS
  6. ELIDEL [Concomitant]
     Indication: PSORIASIS

REACTIONS (1)
  - Psoriasis [Not Recovered/Not Resolved]
